FAERS Safety Report 25631247 (Version 1)
Quarter: 2025Q3

REPORT INFORMATION
  Report Type: Spontaneous
  Country: MY (occurrence: MY)
  Receive Date: 20250801
  Receipt Date: 20250801
  Transmission Date: 20251021
  Serious: Yes (Other)
  Sender: AUROBINDO
  Company Number: MY-AUROBINDO-AUR-APL-2025-039227

PATIENT
  Age: 44 Year
  Sex: Female

DRUGS (2)
  1. PIPERACILLIN SODIUM\TAZOBACTAM SODIUM [Suspect]
     Active Substance: PIPERACILLIN SODIUM\TAZOBACTAM SODIUM
     Indication: Neutropenia
     Dosage: 4.5 GRAM, ONCE A DAY
     Route: 042
  2. PIPERACILLIN SODIUM\TAZOBACTAM SODIUM [Suspect]
     Active Substance: PIPERACILLIN SODIUM\TAZOBACTAM SODIUM
     Indication: Sepsis

REACTIONS (3)
  - Dyspnoea [Recovered/Resolved]
  - Swelling face [Recovered/Resolved]
  - Erythema [Recovered/Resolved]
